FAERS Safety Report 18503128 (Version 7)
Quarter: 2021Q2

REPORT INFORMATION
  Report Type: Report from Study
  Country: CA (occurrence: CA)
  Receive Date: 20201113
  Receipt Date: 20210623
  Transmission Date: 20210717
  Serious: Yes (Hospitalization, Other)
  Sender: FDA-Public Use
  Company Number: CA-SHIRE-CA202010984

PATIENT
  Age: 61 Year
  Sex: Female
  Weight: 111 kg

DRUGS (43)
  1. TEDUGLUTIDE [Suspect]
     Active Substance: TEDUGLUTIDE
     Indication: SHORT-BOWEL SYNDROME
     Dosage: 1.75 MILLIGRAM, 1X/DAY:QD
     Route: 065
     Dates: start: 20190808
  2. TEDUGLUTIDE [Suspect]
     Active Substance: TEDUGLUTIDE
     Dosage: 1.25 (UNKNOWN UNIT), 1X/DAY:QD
     Route: 065
     Dates: start: 20190808
  3. TEDUGLUTIDE [Suspect]
     Active Substance: TEDUGLUTIDE
     Dosage: 1 MILLIGRAM, 1X/DAY:QD
     Route: 065
     Dates: start: 20190808
  4. TEDUGLUTIDE [Suspect]
     Active Substance: TEDUGLUTIDE
     Dosage: 2 MILLIGRAM, 1X/DAY:QD
     Route: 065
     Dates: start: 20190808
  5. TEDUGLUTIDE [Suspect]
     Active Substance: TEDUGLUTIDE
     Dosage: 2 MILLIGRAM, QD
     Route: 065
     Dates: start: 20190808
  6. TEDUGLUTIDE [Suspect]
     Active Substance: TEDUGLUTIDE
     Dosage: 1.25 (UNKNOWN UNIT), 1X/DAY:QD
     Route: 065
     Dates: start: 20190808
  7. TEDUGLUTIDE [Suspect]
     Active Substance: TEDUGLUTIDE
     Dosage: 1 MILLIGRAM, 1X/DAY:QD
     Route: 065
     Dates: start: 20190808
  8. TEDUGLUTIDE [Suspect]
     Active Substance: TEDUGLUTIDE
     Dosage: 1.5 MILLIGRAM, 1X/DAY:QD
     Route: 065
  9. TEDUGLUTIDE [Suspect]
     Active Substance: TEDUGLUTIDE
     Dosage: 5 UNK
     Route: 065
     Dates: start: 20190808
  10. TEDUGLUTIDE [Suspect]
     Active Substance: TEDUGLUTIDE
     Dosage: 5 UNK
     Route: 065
     Dates: start: 20190808
  11. TUDORZA GENUAIR [Concomitant]
     Active Substance: ACLIDINIUM BROMIDE
     Indication: PRODUCT USED FOR UNKNOWN INDICATION
     Dosage: 1 DOSAGE FORM, TWICE A DAILY
     Route: 065
  12. SYMBICORT [Concomitant]
     Active Substance: BUDESONIDE\FORMOTEROL FUMARATE DIHYDRATE
     Indication: COUGH
     Dosage: 2 DOSAGE FORM, 4 TIMES A DAY
     Route: 065
     Dates: start: 20200708
  13. TEDUGLUTIDE [Suspect]
     Active Substance: TEDUGLUTIDE
     Indication: SHORT-BOWEL SYNDROME
     Dosage: 1.75 MILLIGRAM, 1X/DAY:QD
     Route: 065
     Dates: start: 20190808
  14. TEDUGLUTIDE [Suspect]
     Active Substance: TEDUGLUTIDE
     Dosage: 1.25 (UNKNOWN UNIT), 1X/DAY:QD
     Route: 065
     Dates: start: 20190808
  15. TEDUGLUTIDE [Suspect]
     Active Substance: TEDUGLUTIDE
     Dosage: 1.5 MILLIGRAM, 1X/DAY:QD
     Route: 065
  16. HYDROMORPHONE [Concomitant]
     Active Substance: HYDROMORPHONE
     Indication: HERPES ZOSTER
     Dosage: 1 MILLIGRAM, BID (PRN)
  17. TEDUGLUTIDE [Suspect]
     Active Substance: TEDUGLUTIDE
     Dosage: 1 MILLIGRAM, 1X/DAY:QD
     Route: 065
     Dates: start: 20190808
  18. TEDUGLUTIDE [Suspect]
     Active Substance: TEDUGLUTIDE
     Dosage: 2 MILLIGRAM, DAILY
     Route: 065
     Dates: start: 20190808
  19. TEDUGLUTIDE [Suspect]
     Active Substance: TEDUGLUTIDE
     Dosage: 5 UNK
     Route: 065
     Dates: start: 20190808
  20. TEDUGLUTIDE [Suspect]
     Active Substance: TEDUGLUTIDE
     Indication: SHORT-BOWEL SYNDROME
     Dosage: 1.75 MILLIGRAM, 1X/DAY:QD
     Route: 065
     Dates: start: 20190808
  21. TEDUGLUTIDE [Suspect]
     Active Substance: TEDUGLUTIDE
     Dosage: 1.5 MILLIGRAM, 1X/DAY:QD
     Route: 065
  22. TEDUGLUTIDE [Suspect]
     Active Substance: TEDUGLUTIDE
     Dosage: 2 MILLIGRAM, 1X/DAY:QD
     Route: 065
     Dates: start: 20190808
  23. TEDUGLUTIDE [Suspect]
     Active Substance: TEDUGLUTIDE
     Dosage: 2 MILLIGRAM, DAILY
     Route: 065
     Dates: start: 20190808
  24. CYMBALTA [Concomitant]
     Active Substance: DULOXETINE HYDROCHLORIDE
     Dosage: 30 MILLIGRAM, Q4HR
     Route: 048
  25. TEDUGLUTIDE [Suspect]
     Active Substance: TEDUGLUTIDE
     Dosage: 1.25 (UNKNOWN UNIT), 1X/DAY:QD
     Route: 065
     Dates: start: 20190808
  26. TEDUGLUTIDE [Suspect]
     Active Substance: TEDUGLUTIDE
     Dosage: 1.5 MILLIGRAM, 1X/DAY:QD
     Route: 065
  27. TEDUGLUTIDE [Suspect]
     Active Substance: TEDUGLUTIDE
     Dosage: 2 MILLIGRAM, DAILY
     Route: 065
     Dates: start: 20190808
  28. TEDUGLUTIDE [Suspect]
     Active Substance: TEDUGLUTIDE
     Dosage: 2 MILLIGRAM, QD
     Route: 065
     Dates: start: 20190808
  29. TEDUGLUTIDE [Suspect]
     Active Substance: TEDUGLUTIDE
     Dosage: 2 MILLIGRAM, QD
     Route: 065
     Dates: start: 20190808
  30. TUDORZA GENUAIR [Concomitant]
     Active Substance: ACLIDINIUM BROMIDE
     Dosage: 1 PUFF, TWICE DAILY
     Route: 065
  31. CYMBALTA [Concomitant]
     Active Substance: DULOXETINE HYDROCHLORIDE
     Indication: PRODUCT USED FOR UNKNOWN INDICATION
     Dosage: 30 MILLIGRAM, 4 TIMES PER DAY
     Route: 048
  32. TEDUGLUTIDE [Suspect]
     Active Substance: TEDUGLUTIDE
     Dosage: 2 MILLIGRAM, 1X/DAY:QD
     Route: 065
     Dates: start: 20190808
  33. TEDUGLUTIDE [Suspect]
     Active Substance: TEDUGLUTIDE
     Dosage: 2 MILLIGRAM, 1X/DAY:QD
     Route: 065
     Dates: start: 20190808
  34. SYMBICORT [Concomitant]
     Active Substance: BUDESONIDE\FORMOTEROL FUMARATE DIHYDRATE
     Dosage: 2 DOSAGE FORM, QID PRN
     Route: 065
     Dates: start: 20200708
  35. GABAPENTIN. [Concomitant]
     Active Substance: GABAPENTIN
     Indication: PRODUCT USED FOR UNKNOWN INDICATION
     Dosage: 100 MILLIGRAM, 1?3 TABS
  36. TEDUGLUTIDE [Suspect]
     Active Substance: TEDUGLUTIDE
     Indication: SHORT-BOWEL SYNDROME
     Dosage: 1.75 MILLIGRAM, 1X/DAY:QD
     Route: 065
     Dates: start: 20190808
  37. TEDUGLUTIDE [Suspect]
     Active Substance: TEDUGLUTIDE
     Dosage: 1 MILLIGRAM, 1X/DAY:QD
     Route: 065
     Dates: start: 20190808
  38. TEDUGLUTIDE [Suspect]
     Active Substance: TEDUGLUTIDE
     Dosage: 2 MILLIGRAM, DAILY
     Route: 065
     Dates: start: 20190808
  39. TEDUGLUTIDE [Suspect]
     Active Substance: TEDUGLUTIDE
     Dosage: 2 MILLIGRAM, QD
     Route: 065
     Dates: start: 20190808
  40. TEDUGLUTIDE [Suspect]
     Active Substance: TEDUGLUTIDE
     Dosage: 5 UNK
     Route: 065
     Dates: start: 20190808
  41. HUMIRA [Concomitant]
     Active Substance: ADALIMUMAB
     Indication: CROHN^S DISEASE
     Dosage: 40 MILLILITER, 1/WEEK
     Route: 058
  42. ELAVIL [ALLOPURINOL] [Concomitant]
     Active Substance: ALLOPURINOL
     Indication: SLEEP DISORDER
     Dosage: 50 MILLIGRAM, PER HOUR
     Route: 065
  43. DEXILANT [Concomitant]
     Active Substance: DEXLANSOPRAZOLE
     Indication: GASTROOESOPHAGEAL REFLUX DISEASE
     Dosage: 60 MILLIGRAM, QD
     Route: 048

REACTIONS (27)
  - Contusion [Recovering/Resolving]
  - Stress [Unknown]
  - Peripheral swelling [Recovering/Resolving]
  - Lung disorder [Not Recovered/Not Resolved]
  - Stoma complication [Not Recovered/Not Resolved]
  - Abdominal hernia [Unknown]
  - Flatulence [Unknown]
  - Herpes zoster [Unknown]
  - Diarrhoea [Not Recovered/Not Resolved]
  - Cough [Not Recovered/Not Resolved]
  - Intracardiac thrombus [Recovering/Resolving]
  - Skin haemorrhage [Recovering/Resolving]
  - Nausea [Unknown]
  - Drug ineffective [Not Recovered/Not Resolved]
  - Feeding disorder [Unknown]
  - Hernia pain [Not Recovered/Not Resolved]
  - Product availability issue [Unknown]
  - Nightmare [Unknown]
  - Intestinal obstruction [Recovering/Resolving]
  - Faeces hard [Unknown]
  - Lymph node pain [Not Recovered/Not Resolved]
  - Dyspnoea [Not Recovered/Not Resolved]
  - Hallucination [Unknown]
  - Condition aggravated [Not Recovered/Not Resolved]
  - Vomiting [Unknown]
  - Intentional product use issue [Unknown]
  - Product quality issue [Unknown]

NARRATIVE: CASE EVENT DATE: 2020
